FAERS Safety Report 8307348-9 (Version None)
Quarter: 2012Q2

REPORT INFORMATION
  Report Type: 
  Country: None (occurrence: None)
  Receive Date: 20120424
  Receipt Date: 20120416
  Transmission Date: 20120825
  Serious: Yes (Hospitalization)
  Sender: FDA-Public Use
  Company Number: US-BAYER-2011-070912

PATIENT
  Age: 24 Year
  Sex: Female
  Weight: 61.224 kg

DRUGS (4)
  1. MULTI-VITAMIN [Concomitant]
     Indication: SUPPLEMENTATION THERAPY
     Dosage: UNK UNK, QD
     Dates: start: 19980101
  2. MOBIC [Concomitant]
     Dosage: 7.5 MG, UNK, 5-7 DAYS
  3. YASMIN [Suspect]
     Indication: CONTRACEPTION
     Dosage: UNK
     Dates: start: 20030201, end: 20061101
  4. NSAID'S [Concomitant]
     Dosage: UNK
     Dates: start: 20061129

REACTIONS (7)
  - PULMONARY EMBOLISM [None]
  - ANHEDONIA [None]
  - FEAR [None]
  - ANXIETY [None]
  - PSYCHOLOGICAL TRAUMA [None]
  - CHEST PAIN [None]
  - DEEP VEIN THROMBOSIS [None]
